FAERS Safety Report 24936667 (Version 8)
Quarter: 2025Q4

REPORT INFORMATION
  Report Type: Spontaneous
  Country: US (occurrence: US)
  Receive Date: 20250206
  Receipt Date: 20251010
  Transmission Date: 20260118
  Serious: Yes (Death, Hospitalization, Other)
  Sender: STEMLINE THERAPEUTICS
  Company Number: US-STEMLINE THERAPEUTICS B.V.-2025-STML-US000405

PATIENT

DRUGS (23)
  1. ELZONRIS [Suspect]
     Active Substance: TAGRAXOFUSP-ERZS
     Indication: Acute myeloid leukaemia
     Dosage: 7 UG/KG, CYCLIC, (CYCLE 1, DAY 1)
     Route: 042
     Dates: start: 20250128, end: 20250128
  2. ELZONRIS [Suspect]
     Active Substance: TAGRAXOFUSP-ERZS
     Dosage: UNK, (CYCLE 1, DAY 2)
     Route: 042
     Dates: start: 20250129
  3. ELZONRIS [Suspect]
     Active Substance: TAGRAXOFUSP-ERZS
     Dosage: UNK, (CYCLE 1, DAY 3)
     Route: 042
     Dates: start: 20250130
  4. AZACITIDINE [Suspect]
     Active Substance: AZACITIDINE
     Indication: Product used for unknown indication
     Dosage: UNK
     Route: 065
  5. ACYCLOVIR [Concomitant]
     Active Substance: ACYCLOVIR
     Indication: Product used for unknown indication
     Dosage: 400 MG, BID
     Route: 048
  6. ATOVAQUONE [Concomitant]
     Active Substance: ATOVAQUONE
     Indication: Product used for unknown indication
     Dosage: 750 MG, BID
     Route: 048
  7. DICYCLOMINE HYDROCHLORIDE [Concomitant]
     Active Substance: DICYCLOMINE HYDROCHLORIDE
     Indication: Product used for unknown indication
     Dosage: 10 MG, QID (PRN)
     Route: 048
  8. ATROPINE\DIPHENOXYLATE [Concomitant]
     Active Substance: ATROPINE\DIPHENOXYLATE
     Indication: Product used for unknown indication
     Dosage: 2 DOSAGE FORM, Q6HR (PRN)
     Route: 048
  9. GABAPENTIN [Concomitant]
     Active Substance: GABAPENTIN
     Indication: Product used for unknown indication
     Dosage: 100 MG, Q8HR
     Route: 048
  10. GRANISETRON HYDROCHLORIDE [Concomitant]
     Active Substance: GRANISETRON HYDROCHLORIDE
     Indication: Product used for unknown indication
     Dosage: 1 MG, BID (PRN)
     Route: 048
  11. ISAVUCONAZONIUM SULFATE [Concomitant]
     Active Substance: ISAVUCONAZONIUM SULFATE
     Indication: Product used for unknown indication
     Dosage: 372 MG, DAILY
     Route: 048
  12. LETERMOVIR [Concomitant]
     Active Substance: LETERMOVIR
     Indication: Product used for unknown indication
     Dosage: 480 MG, DAILY (EVERY 24 HOURS)
     Route: 048
  13. MICAFUNGIN [Concomitant]
     Active Substance: MICAFUNGIN SODIUM
     Indication: Product used for unknown indication
     Dosage: 150 MG, DAILY (EVERY 24 HOURS), DAILY GIVEN VIA HH INFUSION
     Route: 042
  14. Mouth wash [Concomitant]
     Indication: Product used for unknown indication
     Dosage: 15 ML, DAILY (5 TIMES DAILY)
  15. POTASSIUM CHLORIDE [Concomitant]
     Active Substance: POTASSIUM CHLORIDE
     Indication: Product used for unknown indication
     Dosage: 20 MEQ, DAILY
     Route: 048
  16. PREDNISONE [Concomitant]
     Active Substance: PREDNISONE
     Indication: Product used for unknown indication
  17. SIROLIMUS [Concomitant]
     Active Substance: SIROLIMUS
     Indication: Product used for unknown indication
     Dosage: 1.5 MG, DAILY (DO NOT CRUSH, CHEW OR SPLIT SWALLOW WHOLE AND DONOT TAKE THIS MEDICATION ON LABS ON C
     Route: 048
  18. SIROLIMUS [Concomitant]
     Active Substance: SIROLIMUS
     Dosage: 3.5 MG, DAILY (DO NOT CRUSH, CHEW OR SPLIT SWALLOW WHOLE AND DONOT TAKE THIS MEDICATION ON LABS ON C
     Route: 048
  19. SIROLIMUS [Concomitant]
     Active Substance: SIROLIMUS
     Dosage: 3 MG DAILY, (DO NOT CRUSH, CHEW OR SPLIT SWALLOW WHOLE AND DONOT TAKE THIS MEDICATION ON LABS ON CLI
     Route: 048
  20. VITAMINS [Concomitant]
     Active Substance: VITAMINS
     Indication: Product used for unknown indication
     Dosage: 2 DOSAGE FORM, BID
     Route: 048
  21. TACROLIMUS [Concomitant]
     Active Substance: TACROLIMUS
     Indication: Product used for unknown indication
     Dosage: 2.5 MG, BID (DAILY), DO NOT TAKE THIS MEDICATION BEFORE LABS ON CLINIC APPOINTMENT DAYS)
     Route: 048
  22. URSODIOL [Concomitant]
     Active Substance: URSODIOL
     Indication: Product used for unknown indication
     Dosage: 300 MG, TID (DAILY)
     Route: 048
  23. OXYCODONE HYDROCHLORIDE [Concomitant]
     Active Substance: OXYCODONE HYDROCHLORIDE
     Indication: Pain
     Dosage: 5 MG, Q4HR (EVERY 4 HOURS AS NEEDED OTASSIUM CHLORIDE)
     Route: 048

REACTIONS (8)
  - Pericardial effusion [Fatal]
  - Myocarditis [Fatal]
  - Interstitial lung disease [Unknown]
  - Capillary leak syndrome [Unknown]
  - Neuropathy peripheral [Not Recovered/Not Resolved]
  - Pleural effusion [Unknown]
  - Underdose [Unknown]
  - Product use in unapproved indication [Unknown]

NARRATIVE: CASE EVENT DATE: 20250201
